FAERS Safety Report 5857662-1 (Version None)
Quarter: 2008Q3

REPORT INFORMATION
  Report Type: 
  Country: None (occurrence: None)
  Receive Date: 20080822
  Receipt Date: 20080808
  Transmission Date: 20090109
  Serious: Yes (Death, Congenital Anomaly, Other)
  Sender: FDA-Public Use
  Company Number: 100#03#2008-03859

PATIENT

DRUGS (3)
  1. LAMOTRIGINE [Suspect]
     Indication: DRUG EXPOSURE DURING PREGNANCY
     Dosage: 250 MG, TRANSPLACENTAL
     Route: 064
  2. CARBAMAZEPINE [Suspect]
     Indication: DRUG EXPOSURE DURING PREGNANCY
     Dosage: 200 MG TWICE DAILY, TRANSPLACENTAL
     Route: 064
  3. ACETAZOLAMIDE [Suspect]
     Indication: DRUG EXPOSURE DURING PREGNANCY
     Dosage: 100 MG ONCE DAILY, TRANSPLACENTAL
     Route: 064

REACTIONS (7)
  - CARDIAC ANEURYSM [None]
  - CARDIAC TAMPONADE [None]
  - FOETAL DISORDER [None]
  - INTRA-UTERINE DEATH [None]
  - MATERNAL DRUGS AFFECTING FOETUS [None]
  - PERICARDIAL HAEMORRHAGE [None]
  - THROMBOSIS [None]
